FAERS Safety Report 17038927 (Version 1)
Quarter: 2019Q4

REPORT INFORMATION
  Report Type: Spontaneous
  Country: CN (occurrence: CN)
  Receive Date: 20191115
  Receipt Date: 20191115
  Transmission Date: 20200122
  Serious: Yes (Other)
  Sender: FDA-Public Use
  Company Number: CN-BRISTOL-MYERS SQUIBB COMPANY-BMS-2019-108689

PATIENT
  Age: 35 Year
  Sex: Male

DRUGS (1)
  1. BARACLUDE [Suspect]
     Active Substance: ENTECAVIR
     Indication: HEPATITIS B
     Dosage: 1 TABLET
     Route: 065
     Dates: start: 201910

REACTIONS (4)
  - Hyperthyroidism [Unknown]
  - Back pain [Unknown]
  - Pain [Unknown]
  - Fatigue [Unknown]
